FAERS Safety Report 10661854 (Version 1)
Quarter: 2014Q4

REPORT INFORMATION
  Report Type: Spontaneous
  Country: US (occurrence: None)
  Receive Date: 20141217
  Receipt Date: 20141217
  Transmission Date: 20150529
  Serious: Yes (Hospitalization)
  Sender: FDA-Public Use
  Company Number: None

PATIENT
  Age: 56 Year
  Sex: Male

DRUGS (7)
  1. PAZOPANIB [Suspect]
     Active Substance: PAZOPANIB
     Indication: NEOPLASM MALIGNANT
     Route: 048
     Dates: start: 20140818, end: 20140922
  2. ACETAMINOPHEN. [Concomitant]
     Active Substance: ACETAMINOPHEN
  3. ASPIRIN. [Concomitant]
     Active Substance: ASPIRIN
  4. CETIRLZINE [Concomitant]
  5. BENSONATATE [Concomitant]
  6. DOCUSATE [Concomitant]
     Active Substance: DOCUSATE
  7. CLOTRIMAZOLO TROCHES [Concomitant]

REACTIONS (6)
  - Constipation [None]
  - Back pain [None]
  - Cough [None]
  - Ejection fraction decreased [None]
  - Dyspnoea [None]
  - Left ventricular hypertrophy [None]

NARRATIVE: CASE EVENT DATE: 20140922
